FAERS Safety Report 6739131-X (Version None)
Quarter: 2010Q2

REPORT INFORMATION
  Report Type: 
  Country: None (occurrence: None)
  Receive Date: 20100525
  Receipt Date: 20100513
  Transmission Date: 20101027
  Serious: No
  Sender: FDA-Public Use
  Company Number: 2008BI020193

PATIENT
  Sex: Female

DRUGS (1)
  1. TYSABRI [Suspect]
     Indication: MULTIPLE SCLEROSIS
     Route: 042
     Dates: start: 20070913

REACTIONS (6)
  - BALANCE DISORDER [None]
  - COORDINATION ABNORMAL [None]
  - FALL [None]
  - FEELING JITTERY [None]
  - MULTIPLE SCLEROSIS RELAPSE [None]
  - WEIGHT DECREASED [None]
